FAERS Safety Report 25324967 (Version 6)
Quarter: 2025Q4

REPORT INFORMATION
  Report Type: Report from Study
  Country: US (occurrence: US)
  Receive Date: 20250516
  Receipt Date: 20251215
  Transmission Date: 20260117
  Serious: Yes (Life-Threatening, Hospitalization, Other)
  Sender: NOVARTIS
  Company Number: US-002147023-NVSC2025US078188

PATIENT
  Sex: Female

DRUGS (3)
  1. SCEMBLIX [Suspect]
     Active Substance: ASCIMINIB HYDROCHLORIDE
     Indication: Product used for unknown indication
     Dosage: 20 MG, BID, 1 EVERY OTHER DAY
     Route: 048
  2. SCEMBLIX [Suspect]
     Active Substance: ASCIMINIB HYDROCHLORIDE
     Dosage: 20 MG, OTHER (TWO TIMES A WEEK)
     Route: 048
     Dates: start: 20250218
  3. TASIGNA [Suspect]
     Active Substance: NILOTINIB
     Indication: Product used for unknown indication
     Dosage: UNK
     Route: 065

REACTIONS (12)
  - Laryngitis [Unknown]
  - Nasopharyngitis [Unknown]
  - Cerebrovascular accident [Unknown]
  - Pancreatic cyst [Unknown]
  - Nausea [Unknown]
  - Diarrhoea [Unknown]
  - Heart rate increased [Unknown]
  - Gait inability [Unknown]
  - Peroneal nerve palsy [Unknown]
  - Adverse drug reaction [Unknown]
  - Dehydration [Unknown]
  - Fatigue [Unknown]
